FAERS Safety Report 14633392 (Version 3)
Quarter: 2018Q2

REPORT INFORMATION
  Report Type: Spontaneous
  Country: US (occurrence: US)
  Receive Date: 20180313
  Receipt Date: 20180525
  Transmission Date: 20180711
  Serious: Yes (Other)
  Sender: FDA-Public Use
  Company Number: PHEH2018US009765

PATIENT
  Sex: Female

DRUGS (3)
  1. EXEMESTANE. [Suspect]
     Active Substance: EXEMESTANE
     Indication: BREAST CANCER FEMALE
     Dosage: 25 MG, QD
     Route: 048
     Dates: start: 20180214
  2. AFINITOR [Suspect]
     Active Substance: EVEROLIMUS
     Indication: BREAST CANCER FEMALE
     Dosage: 10 MG, QD
     Route: 048
     Dates: start: 20180214
  3. CAPECITABINE. [Suspect]
     Active Substance: CAPECITABINE
     Indication: BREAST CANCER FEMALE
     Dosage: 25 MG, QD
     Route: 048

REACTIONS (7)
  - Nausea [Recovering/Resolving]
  - Malignant neoplasm progression [Unknown]
  - Vomiting [Recovering/Resolving]
  - Breast cancer female [Unknown]
  - Gastric infection [Recovering/Resolving]
  - Stomatitis [Not Recovered/Not Resolved]
  - Pneumonitis [Not Recovered/Not Resolved]
